FAERS Safety Report 14649977 (Version 1)
Quarter: 2018Q1

REPORT INFORMATION
  Report Type: Spontaneous
  Country: JP (occurrence: JP)
  Receive Date: 20180316
  Receipt Date: 20180316
  Transmission Date: 20180509
  Serious: Yes (Other)
  Sender: FDA-Public Use
  Company Number: JP-PFIZER INC-2018103305

PATIENT
  Age: 7 Decade
  Sex: Male

DRUGS (3)
  1. XALATAN [Suspect]
     Active Substance: LATANOPROST
     Indication: NORMAL TENSION GLAUCOMA
     Dosage: UNK
     Route: 047
  2. AZOPT [Concomitant]
     Active Substance: BRINZOLAMIDE
     Indication: NORMAL TENSION GLAUCOMA
     Dosage: UNK
     Route: 047
  3. MIKELAN LA [Concomitant]
     Active Substance: CARTEOLOL HYDROCHLORIDE
     Indication: NORMAL TENSION GLAUCOMA
     Dosage: UNK
     Route: 047

REACTIONS (3)
  - Corneal disorder [Recovering/Resolving]
  - Visual acuity reduced [Unknown]
  - Vision blurred [Recovered/Resolved]
